FAERS Safety Report 25029022 (Version 1)
Quarter: 2025Q1

REPORT INFORMATION
  Report Type: Report from Study
  Country: CA (occurrence: CA)
  Receive Date: 20250303
  Receipt Date: 20250303
  Transmission Date: 20250408
  Serious: Yes (Death, Other)
  Sender: AMGEN
  Company Number: CA-AMGEN-CANSL2025037953

PATIENT
  Age: 65 Year
  Sex: Female

DRUGS (1)
  1. ADALIMUMAB [Suspect]
     Active Substance: ADALIMUMAB
     Indication: Rheumatoid arthritis
     Dosage: 40 MILLIGRAM, QWK
     Route: 065
     Dates: start: 20230816

REACTIONS (2)
  - Neoplasm malignant [Unknown]
  - Death [Fatal]

NARRATIVE: CASE EVENT DATE: 20250218
